FAERS Safety Report 5940613-9 (Version None)
Quarter: 2008Q4

REPORT INFORMATION
  Report Type: 
  Country: None (occurrence: None)
  Receive Date: 20081030
  Receipt Date: 20081024
  Transmission Date: 20090506
  Serious: Yes (Hospitalization)
  Sender: FDA-Public Use
  Company Number: APP200801031

PATIENT
  Age: 32 Year
  Sex: Male

DRUGS (2)
  1. HEPARIN SODIUM INJECTION [Suspect]
     Indication: THROMBOSIS PROPHYLAXIS
     Dosage: 80 U/KG, INTRAVENOUS BOLUS; 18 U/KG/HR, INTRAVENOUS DRIP
  2. ACTIVASE [Concomitant]

REACTIONS (3)
  - DEEP VEIN THROMBOSIS [None]
  - HEPARIN-INDUCED THROMBOCYTOPENIA [None]
  - VENOUS THROMBOSIS LIMB [None]
